FAERS Safety Report 22703865 (Version 4)
Quarter: 2024Q4

REPORT INFORMATION
  Report Type: Spontaneous
  Country: CZ (occurrence: CZ)
  Receive Date: 20230714
  Receipt Date: 20241104
  Transmission Date: 20250114
  Serious: Yes (Other)
  Sender: MSN LABORATORIES PRIVATE LIMITED
  Company Number: CZ-MSNLABS-2023MSNLIT01046

PATIENT

DRUGS (14)
  1. PREGABALIN [Suspect]
     Active Substance: PREGABALIN
     Indication: Anxiety
     Dosage: MORE-UP TO 2,400 MG/ 50 MILLIGRAM
     Route: 065
  2. PREGABALIN [Suspect]
     Active Substance: PREGABALIN
     Indication: Back pain
     Dosage: 50 MG A14 DAYS
     Route: 065
  3. PREGABALIN [Suspect]
     Active Substance: PREGABALIN
     Indication: Stress
     Dosage: AT A PACE OF 25 MG PER 14 DAYS
     Route: 065
  4. PREGABALIN [Suspect]
     Active Substance: PREGABALIN
     Dosage: 600-2400 MG TITRATION UP TO 150 MG DAILY
     Route: 065
  5. PREGABALIN [Suspect]
     Active Substance: PREGABALIN
     Dosage: 300 MILLIGRAM
     Route: 048
  6. PREGABALIN [Suspect]
     Active Substance: PREGABALIN
     Dosage: 600MILLIGRAM
     Route: 048
  7. PREGABALIN [Suspect]
     Active Substance: PREGABALIN
     Dosage: 2400MILLIGRAM
     Route: 048
  8. PREGABALIN [Suspect]
     Active Substance: PREGABALIN
     Dosage: 25 MILLIGRAM, QD (PER DAY)
     Route: 065
  9. PREGABALIN [Suspect]
     Active Substance: PREGABALIN
     Route: 065
  10. SERTRALINE [Concomitant]
     Active Substance: SERTRALINE HYDROCHLORIDE
     Indication: Stress
     Dosage: 150 MILLIGRAM, QD
     Route: 065
  11. SERTRALINE [Concomitant]
     Active Substance: SERTRALINE HYDROCHLORIDE
     Indication: Anxiety
  12. MIRTAZAPINE [Concomitant]
     Active Substance: MIRTAZAPINE
     Indication: Stress
     Dosage: 15 MILLIGRAM, QD
     Route: 065
  13. MIRTAZAPINE [Concomitant]
     Active Substance: MIRTAZAPINE
     Indication: Anxiety
  14. MIRTAZAPINE [Concomitant]
     Active Substance: MIRTAZAPINE
     Indication: Insomnia

REACTIONS (13)
  - Condition aggravated [Unknown]
  - Toxicity to various agents [Recovered/Resolved]
  - Drug dependence [Recovered/Resolved]
  - Dependence [Recovered/Resolved]
  - Drug abuse [Recovered/Resolved]
  - Overdose [Recovered/Resolved]
  - Intentional product use issue [Unknown]
  - Rebound effect [Unknown]
  - Adverse event [Unknown]
  - Drug withdrawal syndrome [Recovered/Resolved]
  - Anxiety [Recovered/Resolved]
  - Insomnia [Recovered/Resolved]
  - Back pain [Recovered/Resolved]
